FAERS Safety Report 14151443 (Version 5)
Quarter: 2018Q2

REPORT INFORMATION
  Report Type: Spontaneous
  Country: PT (occurrence: PT)
  Receive Date: 20171102
  Receipt Date: 20180409
  Transmission Date: 20180711
  Serious: Yes (Death, Life-Threatening, Hospitalization, Other)
  Sender: FDA-Public Use
  Company Number: PT-009507513-1710PRT014708

PATIENT
  Age: 60 Year
  Sex: Female

DRUGS (1)
  1. KEYTRUDA [Suspect]
     Active Substance: PEMBROLIZUMAB
     Indication: BLADDER NEOPLASM
     Dosage: UNK, CYCLICAL

REACTIONS (6)
  - Therapy partial responder [Unknown]
  - Haemodynamic instability [Recovering/Resolving]
  - Electric injury [Recovering/Resolving]
  - Death [Fatal]
  - Myocarditis [Recovering/Resolving]
  - Electric injury [Fatal]

NARRATIVE: CASE EVENT DATE: 20171215
